FAERS Safety Report 9636507 (Version 1)
Quarter: 2013Q4

REPORT INFORMATION
  Report Type: Spontaneous
  Country: US (occurrence: None)
  Receive Date: 20131017
  Receipt Date: 20131017
  Transmission Date: 20140711
  Serious: No
  Sender: FDA-Public Use
  Company Number: SYM-2013-11588

PATIENT
  Age: 50 Year
  Sex: Female

DRUGS (2)
  1. CARDIZEM [Suspect]
     Indication: HYPERTENSION
     Dates: end: 201305
  2. XELJANZ [Suspect]
     Indication: RHEUMATOID ARTHRITIS
     Dosage: 5MG, 2 N 1 D, ORAL
     Route: 048
     Dates: start: 20130225, end: 20130520

REACTIONS (13)
  - Intestinal perforation [None]
  - Small intestinal haemorrhage [None]
  - Mucosal erosion [None]
  - Malaise [None]
  - Immunodeficiency [None]
  - Sepsis [None]
  - Ulcer haemorrhage [None]
  - Pneumonia [None]
  - Blood alkaline phosphatase increased [None]
  - Blood creatinine increased [None]
  - Blood sodium decreased [None]
  - Blood calcium increased [None]
  - Weight decreased [None]
